FAERS Safety Report 8776843 (Version 1)
Quarter: 2012Q4

REPORT INFORMATION
  Report Type: 
  Country: US (occurrence: US)
  Receive Date: 20120911
  Receipt Date: 20120911
  Transmission Date: 20130627
  Serious: Yes (Other)
  Sender: FDA-Public Use
  Company Number: US-JNJFOC-20120901259

PATIENT
  Age: 11 Month
  Sex: Female

DRUGS (1)
  1. CHILDREN^S TYLENOL GRAPE PUNCH [Suspect]
     Indication: PRODUCT USED FOR UNKNOWN INDICATION
     Dosage: 80 mg/tablet, 24 meltaways
     Route: 048

REACTIONS (3)
  - Overdose [Unknown]
  - Accidental exposure to product by child [Unknown]
  - Product container seal issue [None]
